FAERS Safety Report 17100293 (Version 1)
Quarter: 2019Q4

REPORT INFORMATION
  Report Type: Spontaneous
  Country: US (occurrence: US)
  Receive Date: 20191202
  Receipt Date: 20191202
  Transmission Date: 20200122
  Serious: Yes (Hospitalization)
  Sender: FDA-Public Use
  Company Number: US-JNJFOC-20191135518

PATIENT
  Age: 22 Year
  Sex: Female

DRUGS (6)
  1. REMICADE [Suspect]
     Active Substance: INFLIXIMAB
     Route: 042
     Dates: start: 20191120
  2. TYLENOL [Concomitant]
     Active Substance: ACETAMINOPHEN
     Indication: PREMEDICATION
     Route: 065
  3. REMICADE [Suspect]
     Active Substance: INFLIXIMAB
     Route: 042
     Dates: start: 20190930
  4. REMICADE [Suspect]
     Active Substance: INFLIXIMAB
     Indication: CROHN^S DISEASE
     Route: 042
     Dates: end: 2017
  5. SOLU-MEDROL [Concomitant]
     Active Substance: METHYLPREDNISOLONE SODIUM SUCCINATE
     Indication: PREMEDICATION
     Route: 065
  6. LORATADINE. [Concomitant]
     Active Substance: LORATADINE
     Indication: PREMEDICATION
     Route: 065

REACTIONS (1)
  - Infusion related reaction [Unknown]

NARRATIVE: CASE EVENT DATE: 20191120
